FAERS Safety Report 9608257 (Version 2)
Quarter: 2013Q4

REPORT INFORMATION
  Report Type: Spontaneous
  Country: US (occurrence: US)
  Receive Date: 20131009
  Receipt Date: 20131009
  Transmission Date: 20140711
  Serious: No
  Sender: FDA-Public Use
  Company Number: US-PFIZER INC-2013193906

PATIENT
  Age: 42 Year
  Sex: Female

DRUGS (2)
  1. BOSULIF [Suspect]
     Indication: CHRONIC MYELOID LEUKAEMIA
     Dosage: 500 MG (1 TABLET), 1X/DAY
     Dates: start: 201306
  2. BOSULIF [Suspect]
     Dosage: UNK

REACTIONS (1)
  - Chest discomfort [Unknown]
